FAERS Safety Report 11478924 (Version 1)
Quarter: 2015Q3

REPORT INFORMATION
  Report Type: Spontaneous
  Country: US (occurrence: US)
  Receive Date: 20150909
  Receipt Date: 20150909
  Transmission Date: 20151125
  Serious: No
  Sender: FDA-Public Use
  Company Number: US-JAZZ-2014-US-013456

PATIENT
  Age: 21 Year
  Sex: Male

DRUGS (5)
  1. XYREM [Suspect]
     Active Substance: SODIUM OXYBATE
     Indication: CATAPLEXY
     Dosage: 3 G, BID
     Route: 048
     Dates: start: 20141021
  2. MARINOL [Concomitant]
     Active Substance: DRONABINOL
     Indication: APPETITE DISORDER
     Dosage: 10 MG, BID
  3. XYREM [Suspect]
     Active Substance: SODIUM OXYBATE
     Indication: NARCOLEPSY
     Dosage: 2.25 G, BID
     Route: 048
     Dates: start: 20141014, end: 20141020
  4. GABAPENTIN. [Concomitant]
     Active Substance: GABAPENTIN
     Indication: MIGRAINE
     Dosage: 900 MG, BID
  5. MORPHINE [Concomitant]
     Active Substance: MORPHINE
     Indication: COLITIS
     Dosage: 30 MG, TID

REACTIONS (11)
  - Depressed level of consciousness [Unknown]
  - Psychomotor hyperactivity [Unknown]
  - Fatigue [Unknown]
  - Discomfort [Unknown]
  - Euphoric mood [Unknown]
  - Abdominal discomfort [Not Recovered/Not Resolved]
  - Feeling abnormal [Unknown]
  - Hypotonia [Unknown]
  - Dizziness [Recovered/Resolved]
  - Restless legs syndrome [Unknown]
  - Nausea [Unknown]

NARRATIVE: CASE EVENT DATE: 2014
